FAERS Safety Report 15453731 (Version 2)
Quarter: 2018Q4

REPORT INFORMATION
  Report Type: Spontaneous
  Country: US (occurrence: US)
  Receive Date: 20181001
  Receipt Date: 20181216
  Transmission Date: 20190204
  Serious: Yes (Other)
  Sender: FDA-Public Use
  Company Number: US-009507513-1809USA011849

PATIENT
  Age: 76 Year
  Sex: Female

DRUGS (4)
  1. SHINGRIX [Concomitant]
     Active Substance: RECOMBINANT VARICELLA ZOSTER VIRUS (VZV) GLYCOPROTEIN E
     Dosage: UNK
     Dates: start: 2018
  2. ZOSTAVAX [Suspect]
     Active Substance: VARICELLA-ZOSTER VIRUS STRAIN OKA/MERCK LIVE ANTIGEN
     Indication: PROPHYLAXIS
  3. SHINGRIX [Concomitant]
     Active Substance: RECOMBINANT VARICELLA ZOSTER VIRUS (VZV) GLYCOPROTEIN E
     Dosage: UNK
     Dates: start: 2018
  4. STERILE DILUENT (WATER) [Suspect]
     Active Substance: WATER
     Dosage: 1 SHOT

REACTIONS (2)
  - Herpes zoster [Not Recovered/Not Resolved]
  - Pelvic prolapse [Not Recovered/Not Resolved]

NARRATIVE: CASE EVENT DATE: 20180913
